FAERS Safety Report 8384306-X (Version None)
Quarter: 2012Q2

REPORT INFORMATION
  Report Type: 
  Country: None (occurrence: None)
  Receive Date: 20120524
  Receipt Date: 20120511
  Transmission Date: 20120825
  Serious: No
  Sender: FDA-Public Use
  Company Number: US-ASTRAZENECA-2011SE07578

PATIENT
  Age: 61 Year
  Sex: Male
  Weight: 56.7 kg

DRUGS (18)
  1. NEXIUM [Interacting]
     Indication: ULCER
     Route: 048
  2. NEXIUM [Interacting]
     Indication: GASTROOESOPHAGEAL REFLUX DISEASE
     Route: 048
  3. NEXIUM [Interacting]
     Route: 048
     Dates: start: 20101207
  4. VALIUM [Concomitant]
  5. SEROQUEL XR [Suspect]
     Indication: DEPRESSION
     Route: 048
  6. LORTAB [Concomitant]
     Dates: start: 19910101
  7. SOMA [Concomitant]
  8. XANAX [Concomitant]
  9. CELEBREX [Concomitant]
     Indication: PAIN
  10. MOTRIN [Concomitant]
     Indication: PAIN
  11. PRILOSEC [Suspect]
     Indication: ABDOMINAL DISCOMFORT
     Route: 048
     Dates: start: 19960101
  12. SEROQUEL XR [Suspect]
     Route: 048
  13. TRAZODONE HCL [Concomitant]
  14. HYDROCODONE [Concomitant]
  15. OMEPRAZOLE [Concomitant]
  16. NEXIUM [Interacting]
     Route: 048
     Dates: start: 20101207
  17. UNSPECIFIED [Interacting]
     Route: 065
  18. MIRTAZAPINE [Concomitant]

REACTIONS (22)
  - DRUG INTERACTION [None]
  - NERVOUSNESS [None]
  - MALAISE [None]
  - AMNESIA [None]
  - BODY TEMPERATURE DECREASED [None]
  - NAUSEA [None]
  - DRUG INEFFECTIVE [None]
  - ARTHRITIS [None]
  - WEIGHT DECREASED [None]
  - CONFUSIONAL STATE [None]
  - DRUG EFFECT DECREASED [None]
  - FEELING ABNORMAL [None]
  - SPINAL DISORDER [None]
  - MUSCULOSKELETAL DISCOMFORT [None]
  - COORDINATION ABNORMAL [None]
  - INTENTIONAL DRUG MISUSE [None]
  - ANXIETY [None]
  - HEADACHE [None]
  - DYSPEPSIA [None]
  - OFF LABEL USE [None]
  - PAIN [None]
  - ABDOMINAL DISCOMFORT [None]
